FAERS Safety Report 5563868-1 (Version None)
Quarter: 2007Q4

REPORT INFORMATION
  Report Type: 
  Country: None (occurrence: None)
  Receive Date: 20071217
  Receipt Date: 20071005
  Transmission Date: 20080405
  Serious: No
  Sender: FDA-Public Use
  Company Number: US-ASTRAZENECA-2007UW22327

PATIENT
  Age: 58 Year
  Sex: Male
  Weight: 118.2 kg

DRUGS (3)
  1. CRESTOR [Suspect]
     Route: 048
     Dates: start: 20070701
  2. ZETIA [Suspect]
     Dates: start: 20070701
  3. TRICOR [Suspect]
     Dates: start: 20070701

REACTIONS (4)
  - BLOOD CHOLESTEROL INCREASED [None]
  - EYE PRURITUS [None]
  - RHINORRHOEA [None]
  - WHEEZING [None]
